FAERS Safety Report 7259444-5 (Version None)
Quarter: 2011Q1

REPORT INFORMATION
  Report Type: 
  Country: None (occurrence: None)
  Receive Date: 20110129
  Receipt Date: 20100816
  Transmission Date: 20110831
  Serious: No
  Sender: FDA-Public Use
  Company Number: US-ABBOTT-10P-163-0664841-00

PATIENT
  Age: 22 Year
  Sex: Female

DRUGS (5)
  1. TRAZODONE HCL [Concomitant]
     Indication: INSOMNIA
     Dosage: AT NIGHT TIME
  2. HUMIRA [Suspect]
     Indication: CROHN'S DISEASE
     Dates: start: 20100501
  3. MERCAPTOPURINE [Concomitant]
     Indication: PRODUCT USED FOR UNKNOWN INDICATION
  4. ASACOL [Concomitant]
     Indication: PRODUCT USED FOR UNKNOWN INDICATION
  5. PERCOCET [Concomitant]
     Indication: PRODUCT USED FOR UNKNOWN INDICATION

REACTIONS (1)
  - HERPES ZOSTER [None]
